FAERS Safety Report 4648594-5 (Version None)
Quarter: 2005Q2

REPORT INFORMATION
  Report Type: 
  Country: None (occurrence: None)
  Receive Date: 20050429
  Receipt Date: 20050304
  Transmission Date: 20051028
  Serious: Yes (Hospitalization)
  Sender: FDA-Public Use
  Company Number: 200510733JP

PATIENT
  Age: 69 Year
  Sex: Female

DRUGS (3)
  1. KETEK [Suspect]
     Indication: UPPER RESPIRATORY TRACT INFLAMMATION
     Route: 048
     Dates: start: 20050222, end: 20050225
  2. MUCODYNE [Concomitant]
     Indication: BRONCHITIS
     Route: 048
     Dates: start: 20050222, end: 20050224
  3. DASEN [Concomitant]
     Indication: BRONCHITIS
     Route: 048
     Dates: start: 20050222, end: 20050224

REACTIONS (3)
  - DEPRESSED LEVEL OF CONSCIOUSNESS [None]
  - FEELING ABNORMAL [None]
  - FEELING COLD [None]
